FAERS Safety Report 5167719-9 (Version None)
Quarter: 2006Q4

REPORT INFORMATION
  Report Type: 
  Country: None (occurrence: None)
  Receive Date: 20061204
  Receipt Date: 20061204
  Transmission Date: 20070319
  Serious: No
  Sender: FDA-Public Use
  Company Number: None

PATIENT
  Age: 12 Year
  Sex: Female
  Weight: 46.81 kg

DRUGS (1)
  1. PENICILLIN VK [Suspect]
     Dosage: 500MG TID FOR 10 DAYS  PO
     Route: 048
     Dates: start: 20060829, end: 20060906

REACTIONS (1)
  - URTICARIA [None]
